FAERS Safety Report 13922378 (Version 8)
Quarter: 2018Q3

REPORT INFORMATION
  Report Type: Spontaneous
  Country: GR (occurrence: GR)
  Receive Date: 20170830
  Receipt Date: 20180906
  Transmission Date: 20181010
  Serious: Yes (Death, Hospitalization, Other)
  Sender: FDA-Public Use
  Company Number: GR-SA-2017SA158146

PATIENT
  Age: 47 Year
  Sex: Female
  Weight: 60 kg

DRUGS (4)
  1. METHYLPREDNISOLONE. [Suspect]
     Active Substance: METHYLPREDNISOLONE
     Indication: MULTIPLE SCLEROSIS RELAPSE
     Dosage: 16 MG,UNK
     Route: 048
     Dates: start: 2017, end: 2017
  2. ZOVIRAX [ACICLOVIR] [Concomitant]
     Indication: PROPHYLAXIS
     Dosage: 400 MG,QD
     Route: 048
     Dates: start: 20170725, end: 20170825
  3. SEROPRAM [CITALOPRAM HYDROCHLORIDE] [Concomitant]
     Dosage: 1 DF,QD
     Route: 065
     Dates: end: 20170824
  4. LEMTRADA [Suspect]
     Active Substance: ALEMTUZUMAB
     Indication: RELAPSING-REMITTING MULTIPLE SCLEROSIS
     Dosage: 12 MG,QD
     Route: 041
     Dates: start: 20170728, end: 20170801

REACTIONS (14)
  - Suicidal ideation [Unknown]
  - Acute respiratory distress syndrome [Fatal]
  - Myocardial infarction [Fatal]
  - Sepsis [Fatal]
  - Lymphocyte count decreased [Fatal]
  - Neutropenia [Fatal]
  - Gastrointestinal disorder [Unknown]
  - Pyrexia [Fatal]
  - Staphylococcus test positive [Unknown]
  - Septic shock [Fatal]
  - Thrombocytopenia [Fatal]
  - Systemic inflammatory response syndrome [Fatal]
  - Therapeutic response decreased [Unknown]
  - Cardiac arrest [Fatal]

NARRATIVE: CASE EVENT DATE: 2017
